FAERS Safety Report 5859148-7 (Version None)
Quarter: 2008Q3

REPORT INFORMATION
  Report Type: 
  Country: None (occurrence: None)
  Receive Date: 20080827
  Receipt Date: 20080815
  Transmission Date: 20090109
  Serious: Yes (Hospitalization)
  Sender: FDA-Public Use
  Company Number: US-BAYER-200831080NA

PATIENT
  Sex: Female

DRUGS (2)
  1. BETASERON [Suspect]
     Indication: DRUG USE FOR UNKNOWN INDICATION
  2. BRONCHITIS MEDICATION [Suspect]

REACTIONS (3)
  - BURNS THIRD DEGREE [None]
  - FALL [None]
  - LOSS OF CONSCIOUSNESS [None]
